APPROVED DRUG PRODUCT: LISDEXAMFETAMINE DIMESYLATE
Active Ingredient: LISDEXAMFETAMINE DIMESYLATE
Strength: 10MG
Dosage Form/Route: TABLET, CHEWABLE;ORAL
Application: A217068 | Product #001 | TE Code: AB
Applicant: ASCENT PHARMACEUTICALS INC
Approved: Aug 25, 2023 | RLD: No | RS: No | Type: RX